FAERS Safety Report 8838225 (Version 2)
Quarter: 2012Q4

REPORT INFORMATION
  Report Type: 
  Country: JP (occurrence: JP)
  Receive Date: 20121012
  Receipt Date: 20121120
  Transmission Date: 20130627
  Serious: Yes (Death, Life-Threatening, Hospitalization)
  Sender: FDA-Public Use
  Company Number: JP-TEVA-363293USA

PATIENT
  Age: 81 Year
  Sex: Male
  Weight: 66 kg

DRUGS (6)
  1. TREANDA [Suspect]
     Indication: B-CELL SMALL LYMPHOCYTIC LYMPHOMA
     Dosage: 40 mg/m2, UID/QD Regimen 1
     Route: 042
     Dates: start: 20110512, end: 20110602
  2. TREANDA [Suspect]
     Dosage: 40 mg/m2, UID/QD Regimen 2
     Route: 042
     Dates: start: 20110602, end: 20110602
  3. RITUXIMAB [Suspect]
     Indication: B-CELL SMALL LYMPHOCYTIC LYMPHOMA
     Dosage: 375mg/m2 Regimen 1
     Dates: start: 20110511
  4. RITUXIMAB [Suspect]
     Dosage: Regimen 2
     Dates: start: 20110601
  5. MECOBALAMIN [Concomitant]
     Dates: end: 20120307
  6. FOLIC ACID [Concomitant]
     Dates: end: 20120307

REACTIONS (3)
  - Anal abscess [Fatal]
  - Sepsis [Fatal]
  - Lymphocyte count decreased [Not Recovered/Not Resolved]
